FAERS Safety Report 6733613-2 (Version None)
Quarter: 2010Q2

REPORT INFORMATION
  Report Type: 
  Country: None (occurrence: None)
  Receive Date: 20100520
  Receipt Date: 20100511
  Transmission Date: 20101027
  Serious: Yes (Hospitalization)
  Sender: FDA-Public Use
  Company Number: CZ-SANOFI-AVENTIS-2010SA027004

PATIENT
  Age: 42 Year
  Sex: Female

DRUGS (1)
  1. INDAPAMIDE [Suspect]
     Indication: HYPERTENSION
     Route: 065

REACTIONS (4)
  - BLOOD POTASSIUM DECREASED [None]
  - PRIMARY HYPERALDOSTERONISM [None]
  - SYNCOPE [None]
  - TORSADE DE POINTES [None]
